FAERS Safety Report 5585814-7 (Version None)
Quarter: 2007Q4

REPORT INFORMATION
  Report Type: 
  Country: None (occurrence: None)
  Receive Date: 20071205
  Receipt Date: 20070124
  Transmission Date: 20080405
  Serious: Yes (Other)
  Sender: FDA-Public Use
  Company Number: HQWYE644125JAN07

PATIENT
  Age: 56 Year
  Sex: Male
  Weight: 81.72 kg

DRUGS (1)
  1. EFFEXOR XR [Suspect]
     Indication: DEPRESSION
     Dosage: 225 MG 1X PER 1 DAY, ORAL
     Route: 048
     Dates: start: 20050101, end: 20070101

REACTIONS (1)
  - BLOOD PRESSURE INCREASED [None]
